FAERS Safety Report 20612796 (Version 1)
Quarter: 2022Q1

REPORT INFORMATION
  Report Type: Spontaneous
  Country: US (occurrence: None)
  Receive Date: 20220315
  Receipt Date: 20220315
  Transmission Date: 20220423
  Serious: Yes (unspecified)
  Sender: FDA-Public Use
  Company Number: None

PATIENT
  Age: 25 Year
  Sex: Male
  Weight: 72.9 kg

DRUGS (1)
  1. HERBALS [Suspect]
     Active Substance: HERBALS
     Indication: Molluscum contagiosum
     Dosage: FREQUENCY : AT BEDTIME;?
     Route: 061
     Dates: start: 20220313, end: 20220315

REACTIONS (7)
  - Application site vesicles [None]
  - Application site rash [None]
  - Application site erythema [None]
  - Application site inflammation [None]
  - Application site pruritus [None]
  - Application site pain [None]
  - Application site swelling [None]

NARRATIVE: CASE EVENT DATE: 20220315
